FAERS Safety Report 5237897-1 (Version None)
Quarter: 2007Q1

REPORT INFORMATION
  Report Type: 
  Country: None (occurrence: None)
  Receive Date: 20070209
  Receipt Date: 20070130
  Transmission Date: 20070707
  Serious: Yes (Other)
  Sender: FDA-Public Use
  Company Number: 235929

PATIENT

DRUGS (2)
  1. HERCEPTIN (TRASTUZUMAB) PWDR + SOLEVENT, INFUSION SOLN, 440MG [Suspect]
     Indication: BREAST CANCER
     Dosage: Q3W
  2. CHEMOTHERAPY (UNK INGREDIENTS) (ANTINEOPLASTIC AGENT NOS) [Concomitant]

REACTIONS (2)
  - HAEMATOMA [None]
  - HAEMORRHAGE [None]
